FAERS Safety Report 25576932 (Version 1)
Quarter: 2025Q3

REPORT INFORMATION
  Report Type: Spontaneous
  Country: TH (occurrence: TH)
  Receive Date: 20250718
  Receipt Date: 20250718
  Transmission Date: 20251021
  Serious: Yes (Death)
  Sender: PFIZER
  Company Number: TH-PFIZER INC-PV202500086505

PATIENT
  Age: 78 Year
  Sex: Female

DRUGS (1)
  1. XALKORI [Suspect]
     Active Substance: CRIZOTINIB
     Indication: Non-small cell lung cancer
     Dosage: 250 MG (1 CAP) 2 TIMES A DAY
     Route: 048
     Dates: start: 20241030

REACTIONS (1)
  - Death [Fatal]
